FAERS Safety Report 25437376 (Version 1)
Quarter: 2025Q2

REPORT INFORMATION
  Report Type: Report from Study
  Country: US (occurrence: US)
  Receive Date: 20250616
  Receipt Date: 20250616
  Transmission Date: 20250717
  Serious: Yes (Other)
  Sender: ABBVIE
  Company Number: US-ABBVIE-6322442

PATIENT
  Sex: Female

DRUGS (1)
  1. RINVOQ [Suspect]
     Active Substance: UPADACITINIB
     Indication: Rheumatoid arthritis
     Route: 048
     Dates: start: 20240215

REACTIONS (6)
  - Colectomy [Recovering/Resolving]
  - Intestinal barrier dysfunction [Recovering/Resolving]
  - Fallopian tube abscess [Recovering/Resolving]
  - Abscess rupture [Recovering/Resolving]
  - Large intestine infection [Recovering/Resolving]
  - Wound secretion [Recovering/Resolving]
